FAERS Safety Report 15601184 (Version 1)
Quarter: 2018Q4

REPORT INFORMATION
  Report Type: Spontaneous
  Country: US (occurrence: US)
  Receive Date: 20181109
  Receipt Date: 20181109
  Transmission Date: 20190205
  Serious: No
  Sender: FDA-Public Use
  Company Number: US-PFIZER INC-2018449351

PATIENT
  Age: 16 Year
  Sex: Female
  Weight: 59.42 kg

DRUGS (1)
  1. GABAPENTIN. [Suspect]
     Active Substance: GABAPENTIN
     Indication: FIBROMYALGIA
     Dosage: UNK (100 MG/90)
     Dates: end: 20181027

REACTIONS (8)
  - Vomiting [Recovered/Resolved]
  - Somnolence [Recovered/Resolved]
  - Nausea [Unknown]
  - Product use in unapproved indication [Unknown]
  - Pain [Not Recovered/Not Resolved]
  - Fall [Unknown]
  - Feeding disorder [Recovered/Resolved]
  - Malaise [Recovered/Resolved]

NARRATIVE: CASE EVENT DATE: 20181023
